FAERS Safety Report 9192846 (Version 1)
Quarter: 2013Q1

REPORT INFORMATION
  Report Type: Spontaneous
  Country: FR (occurrence: FR)
  Receive Date: 20130327
  Receipt Date: 20130327
  Transmission Date: 20140127
  Serious: Yes (Hospitalization, Other)
  Sender: FDA-Public Use
  Company Number: FR-PFIZER INC-2013092438

PATIENT
  Age: 4 Week
  Sex: Male
  Weight: 3.42 kg

DRUGS (10)
  1. REVATIO [Suspect]
     Indication: HEART DISEASE CONGENITAL
     Dosage: 6 MG, 2X/DAY
     Route: 048
     Dates: start: 20120131, end: 20120202
  2. REVATIO [Suspect]
     Dosage: 3.5 MG, 3X/DAY
     Route: 048
     Dates: start: 20120217, end: 20120221
  3. AMIODARONE [Suspect]
     Indication: HEART DISEASE CONGENITAL
     Dosage: 100 MG, 1X/DAY
     Route: 042
     Dates: start: 20120205, end: 20120206
  4. AMIODARONE [Suspect]
     Dosage: 125 MG, 1X/DAY
     Route: 042
     Dates: start: 20120207, end: 20120210
  5. AMIODARONE [Suspect]
     Dosage: 60 MG, 1X/DAY
     Route: 042
     Dates: start: 20120211, end: 20120222
  6. LASILIX [Concomitant]
  7. SOLUDACTONE [Concomitant]
  8. MOPRAL [Concomitant]
  9. SUFENTA [Concomitant]
  10. HYPNOVEL [Concomitant]

REACTIONS (4)
  - Gamma-glutamyltransferase increased [Unknown]
  - Cholestasis [Unknown]
  - Hepatocellular injury [Unknown]
  - Off label use [Recovered/Resolved]
